FAERS Safety Report 10311775 (Version 18)
Quarter: 2015Q3

REPORT INFORMATION
  Report Type: Report from Study
  Country: US (occurrence: US)
  Receive Date: 20140717
  Receipt Date: 20150814
  Transmission Date: 20151125
  Serious: Yes (Other)
  Sender: FDA-Public Use
  Company Number: US-SA-2014SA071624

PATIENT
  Age: 58 Year
  Sex: Male

DRUGS (4)
  1. FINASTERIDE. [Concomitant]
     Active Substance: FINASTERIDE
  2. RITALIN [Concomitant]
     Active Substance: METHYLPHENIDATE HYDROCHLORIDE
  3. AUBAGIO [Suspect]
     Active Substance: TERIFLUNOMIDE
     Indication: MULTIPLE SCLEROSIS
     Route: 048
     Dates: start: 20140508
  4. TERAZOSIN [Concomitant]
     Active Substance: TERAZOSIN\TERAZOSIN HYDROCHLORIDE

REACTIONS (21)
  - Fatigue [Not Recovered/Not Resolved]
  - Calculus bladder [Unknown]
  - Dysgraphia [Unknown]
  - Memory impairment [Unknown]
  - Dysphonia [Not Recovered/Not Resolved]
  - Prostatic operation [Unknown]
  - Humidity intolerance [Unknown]
  - Cognitive disorder [Not Recovered/Not Resolved]
  - Muscular weakness [Unknown]
  - Sleep disorder [Not Recovered/Not Resolved]
  - Dizziness [Recovering/Resolving]
  - Asthenia [Not Recovered/Not Resolved]
  - Alopecia [Not Recovered/Not Resolved]
  - Disorientation [Not Recovered/Not Resolved]
  - Balance disorder [Not Recovered/Not Resolved]
  - Muscular weakness [Not Recovered/Not Resolved]
  - Exercise tolerance decreased [Unknown]
  - Dysarthria [Unknown]
  - Somnolence [Unknown]
  - Depression [Recovering/Resolving]
  - Speech disorder [Not Recovered/Not Resolved]

NARRATIVE: CASE EVENT DATE: 2014
